FAERS Safety Report 6276158-9 (Version None)
Quarter: 2009Q3

REPORT INFORMATION
  Report Type: 
  Country: None (occurrence: None)
  Receive Date: 20090722
  Receipt Date: 20090713
  Transmission Date: 20100115
  Serious: Yes (Hospitalization)
  Sender: FDA-Public Use
  Company Number: US-ELI_LILLY_AND_COMPANY-US200907003047

PATIENT

DRUGS (1)
  1. BYETTA [Suspect]

REACTIONS (4)
  - GASTROINTESTINAL DISORDER [None]
  - MALAISE [None]
  - MYALGIA [None]
  - NAUSEA [None]
